FAERS Safety Report 25938676 (Version 1)
Quarter: 2025Q4

REPORT INFORMATION
  Report Type: Report from Study
  Country: US (occurrence: US)
  Receive Date: 20251019
  Receipt Date: 20251019
  Transmission Date: 20260118
  Serious: Yes (Other)
  Sender: JOHNSON AND JOHNSON
  Company Number: US-JNJFOC-20251023281

PATIENT
  Age: 4 Decade
  Sex: Female

DRUGS (2)
  1. SPRAVATO [Suspect]
     Active Substance: ESKETAMINE
     Indication: Depression
     Dosage: ?84 MG, 10 TOTAL DOSES?
     Route: 045
     Dates: start: 20240306, end: 20240606
  2. SPRAVATO [Suspect]
     Active Substance: ESKETAMINE
     Dosage: ?56 MG, 7 TOTAL DOSES?
     Route: 045
     Dates: start: 20240131, end: 20240229

REACTIONS (1)
  - Neoplasm malignant [Unknown]
